FAERS Safety Report 8098203-0 (Version None)
Quarter: 2012Q1

REPORT INFORMATION
  Report Type: 
  Country: None (occurrence: None)
  Receive Date: 20120128
  Receipt Date: 20110809
  Transmission Date: 20120608
  Serious: No
  Sender: FDA-Public Use
  Company Number: US-ABBOTT-11P-163-0845169-00

PATIENT
  Sex: Female
  Weight: 95.34 kg

DRUGS (2)
  1. HUMIRA [Suspect]
     Indication: RHEUMATOID ARTHRITIS
     Dates: start: 20110301
  2. METHOTREXATE [Concomitant]
     Indication: RHEUMATOID ARTHRITIS

REACTIONS (5)
  - INJECTION SITE PAIN [None]
  - NAUSEA [None]
  - FATIGUE [None]
  - BACK PAIN [None]
  - PAIN IN EXTREMITY [None]
